FAERS Safety Report 7246364-5 (Version None)
Quarter: 2011Q1

REPORT INFORMATION
  Report Type: 
  Country: None (occurrence: None)
  Receive Date: 20110126
  Receipt Date: 20110120
  Transmission Date: 20110831
  Serious: Yes (Hospitalization)
  Sender: FDA-Public Use
  Company Number: US-PFIZER INC-2011014519

PATIENT
  Sex: Female
  Weight: 104 kg

DRUGS (3)
  1. DIGOXIN [Suspect]
     Dosage: UNK
  2. CADUET [Suspect]
     Indication: BLOOD CHOLESTEROL INCREASED
  3. CADUET [Suspect]
     Indication: HYPERTENSION
     Dosage: 5MG/10 MG, 1X/DAY
     Route: 048
     Dates: end: 20101201

REACTIONS (4)
  - DEHYDRATION [None]
  - PULMONARY OEDEMA [None]
  - CARDIAC DISORDER [None]
  - TOXICITY TO VARIOUS AGENTS [None]
